FAERS Safety Report 9991647 (Version 1)
Quarter: 2014Q1

REPORT INFORMATION
  Report Type: Spontaneous
  Country: PT (occurrence: PT)
  Receive Date: 20140310
  Receipt Date: 20140310
  Transmission Date: 20141002
  Serious: Yes (Hospitalization, Other)
  Sender: FDA-Public Use
  Company Number: PT-GILEAD-2014-0095895

PATIENT
  Age: 10 Year
  Sex: Female

DRUGS (2)
  1. CAYSTON [Suspect]
     Indication: CYSTIC FIBROSIS
     Route: 065
  2. COLISTIN [Concomitant]
     Route: 065

REACTIONS (2)
  - Forced expiratory volume decreased [Recovering/Resolving]
  - Burkholderia cepacia complex infection [Unknown]
